FAERS Safety Report 23592611 (Version 1)
Quarter: 2024Q1

REPORT INFORMATION
  Report Type: Spontaneous
  Country: FR (occurrence: FR)
  Receive Date: 20240304
  Receipt Date: 20240304
  Transmission Date: 20240410
  Serious: Yes (Hospitalization)
  Sender: FDA-Public Use
  Company Number: None

PATIENT
  Age: 19 Year
  Sex: Female
  Weight: 47 kg

DRUGS (3)
  1. ACETAMINOPHEN [Suspect]
     Active Substance: ACETAMINOPHEN
     Indication: Intentional overdose
     Dosage: 8.000G
     Route: 048
     Dates: start: 20231219, end: 20231219
  2. PAROXETINE [Suspect]
     Active Substance: PAROXETINE
     Indication: Intentional overdose
     Dosage: 20 MG X 20 CP
     Route: 048
     Dates: start: 20231219, end: 20231219
  3. VENLAFAXINE [Suspect]
     Active Substance: VENLAFAXINE HYDROCHLORIDE
     Indication: Intentional overdose
     Dosage: 75 MG X 60 CP
     Route: 048
     Dates: start: 20231219, end: 20231219

REACTIONS (5)
  - Altered state of consciousness [Recovered/Resolved]
  - Pyramidal tract syndrome [Recovered/Resolved]
  - Poisoning deliberate [Recovered/Resolved]
  - Hepatic cytolysis [Recovered/Resolved]
  - Tonic clonic movements [Recovered/Resolved]

NARRATIVE: CASE EVENT DATE: 20231219
